FAERS Safety Report 18853043 (Version 1)
Quarter: 2021Q1

REPORT INFORMATION
  Report Type: Spontaneous
  Country: FR (occurrence: FR)
  Receive Date: 20210205
  Receipt Date: 20210205
  Transmission Date: 20210420
  Serious: Yes (Other)
  Sender: FDA-Public Use
  Company Number: FR-LUPIN PHARMACEUTICALS INC.-2021-01123

PATIENT

DRUGS (1)
  1. METHYLPREDNISOLONE. [Suspect]
     Active Substance: METHYLPREDNISOLONE
     Indication: BRONCHOPULMONARY DYSPLASIA
     Dosage: ADMINISTERED OVER 4?8 HOURS, FOR 3 DAYS. THE INTERVAL BETWEEN TWO PULSES WAS 4 WEEKS
     Route: 042

REACTIONS (2)
  - Adrenal insufficiency [Unknown]
  - Hypertension [Unknown]
